FAERS Safety Report 8909468 (Version 1)
Quarter: 2012Q4

REPORT INFORMATION
  Report Type: Spontaneous
  Country: DK (occurrence: None)
  Receive Date: 20121109
  Receipt Date: 20121109
  Transmission Date: 20130627
  Serious: Yes (Death)
  Sender: FDA-Public Use
  Company Number: 2012MA013045

PATIENT
  Age: 69 Year
  Sex: Female

DRUGS (5)
  1. DIAZEPAM [Suspect]
  2. NITRAZEPAM [Suspect]
  3. CITALOPRAM HYDROBROMIDE [Suspect]
  4. REMINYL [Suspect]
  5. LORAZEPAM [Suspect]

REACTIONS (4)
  - Catatonia [None]
  - Withdrawal syndrome [None]
  - Drug interaction [None]
  - Accidental overdose [None]
